FAERS Safety Report 4736674-5 (Version None)
Quarter: 2005Q3

REPORT INFORMATION
  Report Type: 
  Country: None (occurrence: None)
  Receive Date: 20050804
  Receipt Date: 20050721
  Transmission Date: 20060218
  Serious: No
  Sender: FDA-Public Use
  Company Number: 2005PV000495

PATIENT
  Age: 66 Year
  Sex: Male
  Weight: 73.0291 kg

DRUGS (7)
  1. SYMLIN [Suspect]
     Indication: DIABETES MELLITUS NON-INSULIN-DEPENDENT
     Dosage: 60; 15 UG; BID; SC
     Route: 058
     Dates: start: 20050630, end: 20050705
  2. SYMLIN [Suspect]
     Indication: DIABETES MELLITUS NON-INSULIN-DEPENDENT
     Dosage: 60; 15 UG; BID; SC
     Route: 058
     Dates: start: 20050718, end: 20050726
  3. METFORMIN [Concomitant]
  4. HUMALOG [Concomitant]
  5. HUMALOG [Concomitant]
  6. HYZAAR [Concomitant]
  7. LIPITOR [Concomitant]

REACTIONS (2)
  - CHEST PAIN [None]
  - NAUSEA [None]
